FAERS Safety Report 21312158 (Version 1)
Quarter: 2022Q3

REPORT INFORMATION
  Report Type: Spontaneous
  Country: US (occurrence: None)
  Receive Date: 20220909
  Receipt Date: 20220909
  Transmission Date: 20221026
  Serious: No
  Sender: FDA-Public Use
  Company Number: US-ARIS GLOBAL-202204-0704

PATIENT
  Sex: Female

DRUGS (24)
  1. OXERVATE [Suspect]
     Active Substance: CENEGERMIN-BKBJ
     Indication: Neurotrophic keratopathy
     Route: 047
     Dates: start: 20220411
  2. VITAMINS [Concomitant]
     Active Substance: VITAMINS
  3. XIIDRA [Concomitant]
     Active Substance: LIFITEGRAST
     Dosage: 5% DROPERETTE
  4. SYSTANE (HYPROMELLOSE 2910 (4000 MPA.S)) [Concomitant]
     Active Substance: HYPROMELLOSE 2910 (4000 MPA.S)
     Dosage: 0.3 %-0.4% DROPS
  5. LANSOPRAZOLE [Concomitant]
     Active Substance: LANSOPRAZOLE
     Dosage: 30 MG CAPSULE DR
  6. GLIPIZIDE [Concomitant]
     Active Substance: GLIPIZIDE
  7. ASPIRIN [Concomitant]
     Active Substance: ASPIRIN
  8. SERTRALINE HYDROCHLORIDE [Concomitant]
     Active Substance: SERTRALINE HYDROCHLORIDE
  9. OZEMPIC [Concomitant]
     Active Substance: SEMAGLUTIDE
     Dosage: 2MG/0.75ML PEN INJCTR
  10. TOUJEO [Concomitant]
     Active Substance: INSULIN GLARGINE
     Dosage: 300/ML INSULN PEN
  11. VITAMIN D3 [Concomitant]
     Active Substance: CHOLECALCIFEROL
  12. ROSUVASTATIN CALCIUM [Concomitant]
     Active Substance: ROSUVASTATIN CALCIUM
  13. POTASSIUM CHLORIDE [Concomitant]
     Active Substance: POTASSIUM CHLORIDE
  14. ROPINIROLE [Concomitant]
     Active Substance: ROPINIROLE
     Dosage: 2 MG TAB ER 24H
  15. NOVOLOG [Concomitant]
     Active Substance: INSULIN ASPART
     Dosage: 100/ML VIAL
  16. METFORMIN [Concomitant]
     Active Substance: METFORMIN HYDROCHLORIDE
     Dosage: ER GASTRIC
  17. LORATADINE [Concomitant]
     Active Substance: LORATADINE
  18. HYDROCHLOROTHIAZIDE\LOSARTAN [Concomitant]
     Active Substance: HYDROCHLOROTHIAZIDE\LOSARTAN
  19. FISH OIL [Concomitant]
     Active Substance: FISH OIL
  20. FARXIGA [Concomitant]
     Active Substance: DAPAGLIFLOZIN PROPANEDIOL
  21. CALCIUM [Concomitant]
     Active Substance: CALCIUM
     Dosage: 500 (1250) TABLET
  22. AMLODIPINE BESYLATE [Concomitant]
     Active Substance: AMLODIPINE BESYLATE
  23. VITAMIN C [Concomitant]
     Active Substance: ASCORBIC ACID
  24. IRON [Concomitant]
     Active Substance: IRON
     Dosage: 325(65) MG TABLET

REACTIONS (1)
  - Photophobia [Unknown]
